FAERS Safety Report 8853255 (Version 2)
Quarter: 2012Q4

REPORT INFORMATION
  Report Type: 
  Country: US (occurrence: US)
  Receive Date: 20121022
  Receipt Date: 20121112
  Transmission Date: 20130627
  Serious: Yes (Other)
  Sender: FDA-Public Use
  Company Number: US-PFIZER INC-2012261878

PATIENT
  Age: 31 Year
  Sex: Female

DRUGS (1)
  1. ZOLOFT [Suspect]
     Indication: DEPRESSION
     Dosage: 100 mg/day
     Route: 048
     Dates: start: 2003

REACTIONS (5)
  - Oesophageal pain [Recovered/Resolved]
  - Oropharyngeal pain [Recovered/Resolved]
  - Oesophageal oedema [Recovered/Resolved]
  - Pharyngeal oedema [Unknown]
  - Insomnia [Unknown]
